FAERS Safety Report 11820156 (Version 1)
Quarter: 2015Q4

REPORT INFORMATION
  Report Type: Spontaneous
  Country: None (occurrence: None)
  Receive Date: 20151209
  Receipt Date: 20151209
  Transmission Date: 20160305
  Serious: No
  Sender: FDA-Public Use
  Company Number: None

PATIENT
  Age: 58 Year
  Sex: Male

DRUGS (18)
  1. IPILIMUMAB [Suspect]
     Active Substance: IPILIMUMAB
     Indication: METASTATIC MALIGNANT MELANOMA
     Dates: start: 20150424, end: 20150605
  2. ASA [Concomitant]
     Active Substance: ASPIRIN
  3. NAPROXEN. [Concomitant]
     Active Substance: NAPROXEN
  4. OMEPRAZOLE. [Concomitant]
     Active Substance: OMEPRAZOLE
  5. HYDROCORTISONE. [Concomitant]
     Active Substance: HYDROCORTISONE
  6. LEVOTHYROXINE. [Concomitant]
     Active Substance: LEVOTHYROXINE
  7. SENNA-DOCUSATE [Concomitant]
  8. AMLODIPINE [Concomitant]
     Active Substance: AMLODIPINE BESYLATE
  9. IBUPROFEN. [Concomitant]
     Active Substance: IBUPROFEN
  10. ATENOLOL. [Concomitant]
     Active Substance: ATENOLOL
  11. ONDANSETRON [Concomitant]
     Active Substance: ONDANSETRON
  12. HCTZ [Concomitant]
     Active Substance: HYDROCHLOROTHIAZIDE
  13. MORPHINE [Concomitant]
     Active Substance: MORPHINE
  14. OXYCODONE [Concomitant]
     Active Substance: OXYCODONE
  15. APAP [Concomitant]
     Active Substance: ACETAMINOPHEN
  16. BACLOFEN. [Concomitant]
     Active Substance: BACLOFEN
  17. SERTRALINE [Concomitant]
     Active Substance: SERTRALINE HYDROCHLORIDE
  18. GABAPENTIN. [Concomitant]
     Active Substance: GABAPENTIN

REACTIONS (9)
  - Hypopituitarism [None]
  - Blood cortisol decreased [None]
  - Blood thyroid stimulating hormone decreased [None]
  - Headache [None]
  - Fatigue [None]
  - Hypophysitis [None]
  - Hypertension [None]
  - Thyroxine free decreased [None]
  - Neck pain [None]
